FAERS Safety Report 8911882 (Version 1)
Quarter: 2012Q4

REPORT INFORMATION
  Report Type: Report from Study
  Country: CA (occurrence: CA)
  Receive Date: 20121116
  Receipt Date: 20121116
  Transmission Date: 20130627
  Serious: Yes (Other)
  Sender: FDA-Public Use
  Company Number: CA-JNJFOC-20121104187

PATIENT
  Age: 32 None
  Sex: Female
  Weight: 90.2 kg

DRUGS (1)
  1. REMICADE [Suspect]
     Indication: CROHN^S DISEASE
     Route: 042
     Dates: start: 20091123

REACTIONS (2)
  - Benign neoplasm of cervix uteri [Recovered/Resolved]
  - Abdominal pain [Unknown]
